FAERS Safety Report 15061371 (Version 1)
Quarter: 2018Q2

REPORT INFORMATION
  Report Type: Spontaneous
  Country: US (occurrence: US)
  Receive Date: 20180625
  Receipt Date: 20180625
  Transmission Date: 20180711
  Serious: No
  Sender: FDA-Public Use
  Company Number: US-ROCHE-2037240

PATIENT
  Sex: Female

DRUGS (10)
  1. IPRATROPIUM BROMIDE. [Concomitant]
     Active Substance: IPRATROPIUM BROMIDE
  2. BOTOX [Concomitant]
     Active Substance: ONABOTULINUMTOXINA
     Indication: MIGRAINE
  3. ONZETRA [Suspect]
     Active Substance: SUMATRIPTAN SUCCINATE
     Indication: MIGRAINE
     Dosage: NASAL POWDER?STRENGTH: 11 MG/NOSEPIECE
     Route: 065
  4. CYCLOBENZAPRINE. [Concomitant]
     Active Substance: CYCLOBENZAPRINE
     Route: 065
  5. TYLENOL [Concomitant]
     Active Substance: ACETAMINOPHEN
  6. BACLOFEN. [Concomitant]
     Active Substance: BACLOFEN
  7. RELPAX [Concomitant]
     Active Substance: ELETRIPTAN HYDROBROMIDE
  8. LUPRON [Concomitant]
     Active Substance: LEUPROLIDE ACETATE
  9. LUNESTA [Concomitant]
     Active Substance: ESZOPICLONE
  10. KLONOPIN [Suspect]
     Active Substance: CLONAZEPAM
     Indication: ANALGESIC THERAPY
     Route: 065

REACTIONS (3)
  - Headache [Unknown]
  - Anxiety [Unknown]
  - Dizziness [Unknown]
